FAERS Safety Report 25663571 (Version 3)
Quarter: 2025Q3

REPORT INFORMATION
  Report Type: Spontaneous
  Country: GB (occurrence: GB)
  Receive Date: 20250811
  Receipt Date: 20250825
  Transmission Date: 20251020
  Serious: Yes (Death, Hospitalization, Other)
  Sender: GENMAB
  Company Number: GB-ABBVIE-6405206

PATIENT
  Sex: Male

DRUGS (1)
  1. EPCORITAMAB [Suspect]
     Active Substance: EPCORITAMAB
     Indication: Diffuse large B-cell lymphoma
     Route: 058
     Dates: start: 20250715

REACTIONS (10)
  - Escherichia infection [Fatal]
  - Pseudomonas infection [Fatal]
  - COVID-19 [Fatal]
  - Pneumonia [Fatal]
  - Hypotension [Unknown]
  - Hypoxia [Recovering/Resolving]
  - Sepsis [Unknown]
  - Pyrexia [Unknown]
  - Blood pressure fluctuation [Recovering/Resolving]
  - Vasodilatation [Not Recovered/Not Resolved]

NARRATIVE: CASE EVENT DATE: 20250801
